FAERS Safety Report 7462463-7 (Version None)
Quarter: 2011Q2

REPORT INFORMATION
  Report Type: 
  Country: None (occurrence: None)
  Receive Date: 20110506
  Receipt Date: 20100916
  Transmission Date: 20111010
  Serious: No
  Sender: FDA-Public Use
  Company Number: US-BAYER-201036389NA

PATIENT
  Sex: Female

DRUGS (2)
  1. YASMIN [Suspect]
     Dosage: UNK
     Route: 048
     Dates: start: 20080101, end: 20100401
  2. YASMIN [Suspect]
     Dosage: UNK
     Route: 048
     Dates: start: 20100901, end: 20100901

REACTIONS (6)
  - CHEST PAIN [None]
  - MUSCLE SPASMS [None]
  - HEART RATE INCREASED [None]
  - MOOD SWINGS [None]
  - HEADACHE [None]
  - MUSCULOSKELETAL PAIN [None]
